FAERS Safety Report 20760688 (Version 1)
Quarter: 2022Q2

REPORT INFORMATION
  Report Type: Spontaneous
  Country: FR (occurrence: FR)
  Receive Date: 20220428
  Receipt Date: 20220428
  Transmission Date: 20220721
  Serious: Yes (Other)
  Sender: FDA-Public Use
  Company Number: FR-AFSSAPS-AVCN20220282

PATIENT
  Age: 35 Year
  Sex: Female

DRUGS (1)
  1. TRAMADOL [Suspect]
     Active Substance: TRAMADOL
     Indication: Product used for unknown indication
     Dosage: UNK (NOT SPECIFIED, TRAMADOL LP 100MG TAB)
     Route: 065

REACTIONS (1)
  - Drug abuse [Not Recovered/Not Resolved]
